FAERS Safety Report 4372674-5 (Version None)
Quarter: 2004Q2

REPORT INFORMATION
  Report Type: 
  Country: None (occurrence: None)
  Receive Date: 20040608
  Receipt Date: 20040528
  Transmission Date: 20050107
  Serious: Yes (Hospitalization, Disabling)
  Sender: FDA-Public Use
  Company Number: NO-JNJFOC-20040600008

PATIENT
  Sex: Male

DRUGS (3)
  1. REMICADE [Suspect]
     Route: 042
  2. IMUREL [Concomitant]
  3. PREDNISOLONE [Concomitant]

REACTIONS (5)
  - APHASIA [None]
  - CEREBELLAR INFARCTION [None]
  - HEMIPLEGIA [None]
  - MONOPLEGIA [None]
  - SOMNOLENCE [None]
